FAERS Safety Report 10647184 (Version 1)
Quarter: 2014Q4

REPORT INFORMATION
  Report Type: Spontaneous
  Country: US (occurrence: US)
  Receive Date: 20141211
  Receipt Date: 20141211
  Transmission Date: 20150529
  Serious: No
  Sender: FDA-Public Use
  Company Number: US-ASTRAZENECA-2014SE92929

PATIENT
  Age: 13 Year
  Sex: Male

DRUGS (1)
  1. ARIMIDEX [Suspect]
     Active Substance: ANASTROZOLE
     Indication: PRECOCIOUS PUBERTY
     Route: 048
     Dates: start: 20140512

REACTIONS (2)
  - Product use issue [Unknown]
  - Mood swings [Unknown]

NARRATIVE: CASE EVENT DATE: 2014
